FAERS Safety Report 6180852-8 (Version None)
Quarter: 2009Q2

REPORT INFORMATION
  Report Type: 
  Country: None (occurrence: None)
  Receive Date: 20090504
  Receipt Date: 20090504
  Transmission Date: 20091009
  Serious: Yes (Hospitalization)
  Sender: FDA-Public Use
  Company Number: None

PATIENT
  Sex: Female
  Weight: 101.1521 kg

DRUGS (1)
  1. LEVAQUIN [Suspect]
     Indication: INFUSION
     Dosage: 1 TAB QD PO
     Route: 048
     Dates: start: 20090413, end: 20090417

REACTIONS (2)
  - CONTUSION [None]
  - TENDON RUPTURE [None]
